FAERS Safety Report 8847506 (Version 1)
Quarter: 2012Q4

REPORT INFORMATION
  Report Type: 
  Country: US (occurrence: US)
  Receive Date: 20121018
  Receipt Date: 20121018
  Transmission Date: 20130627
  Serious: Yes (Death)
  Sender: FDA-Public Use
  Company Number: CHPA2012US021684

PATIENT
  Age: 75 Year
  Sex: Female

DRUGS (1)
  1. MYOFLEX ANALGESIC CREME [Suspect]
     Indication: FIBROMYALGIA
     Dosage: Unk, Unk
     Route: 061

REACTIONS (2)
  - Death [Fatal]
  - Off label use [Unknown]
